FAERS Safety Report 7753028-8 (Version None)
Quarter: 2011Q3

REPORT INFORMATION
  Report Type: 
  Country: None (occurrence: None)
  Receive Date: 20110915
  Receipt Date: 20110903
  Transmission Date: 20111222
  Serious: Yes (Other)
  Sender: FDA-Public Use
  Company Number: US-PFIZER INC-2011206245

PATIENT
  Sex: Male
  Weight: 91.723 kg

DRUGS (10)
  1. LOVASTATIN [Concomitant]
     Indication: HYPERLIPIDAEMIA
     Dosage: 20 MG, 1X/DAY
     Route: 048
     Dates: start: 20090101
  2. ACETAMINOPHEN [Suspect]
     Indication: POST HERPETIC NEURALGIA
     Dosage: 650 MG, PRN BID
     Route: 048
     Dates: start: 20110817, end: 20110901
  3. LISINOPRIL [Concomitant]
     Indication: HYPERTENSION
     Dosage: UNK
     Dates: start: 20040101
  4. DIPHENHYDRAMINE [Concomitant]
     Indication: PRURITUS
     Dosage: UNK
     Dates: start: 20110831
  5. OXYBUTYNIN [Concomitant]
     Indication: HYPERTONIC BLADDER
     Dosage: UNK
     Route: 048
     Dates: start: 20060101
  6. BLINDED NO SUBJECT DRUG [Suspect]
     Indication: POST HERPETIC NEURALGIA
     Dosage: 165 MG, 1X/DAY
     Route: 048
     Dates: start: 20110804, end: 20110830
  7. PREGABALIN [Suspect]
     Indication: POST HERPETIC NEURALGIA
     Dosage: 165 MG, 1X/DAY
     Route: 048
     Dates: start: 20110804, end: 20110830
  8. ALLOPURINOL [Concomitant]
     Indication: GOUT
     Dosage: UNK
     Dates: start: 20110907
  9. SPIRONOLACTONE [Concomitant]
     Dosage: DOSE CHANGE
     Dates: start: 20110818
  10. SPIRONOLACTONE [Concomitant]
     Indication: HYPERTENSION
     Dosage: UNK
     Dates: start: 20110701, end: 20110818

REACTIONS (1)
  - HY'S LAW CASE [None]
